FAERS Safety Report 8183487-0 (Version None)
Quarter: 2012Q1

REPORT INFORMATION
  Report Type: 
  Country: None (occurrence: None)
  Receive Date: 20120305
  Receipt Date: 20120224
  Transmission Date: 20120608
  Serious: Yes (Hospitalization)
  Sender: FDA-Public Use
  Company Number: US-BAYER-2011-047141

PATIENT
  Sex: Female
  Weight: 96 kg

DRUGS (3)
  1. YASMIN [Suspect]
     Indication: ACNE
     Dosage: UNK
     Route: 048
     Dates: start: 20060101, end: 20070801
  2. YASMIN [Suspect]
     Indication: CONSTIPATION
  3. YAZ [Suspect]
     Dosage: UNK
     Route: 048
     Dates: start: 20070801, end: 20070901

REACTIONS (7)
  - FEAR [None]
  - DEEP VEIN THROMBOSIS [None]
  - ANXIETY [None]
  - PAIN [None]
  - EMOTIONAL DISTRESS [None]
  - ANHEDONIA [None]
  - PSYCHOLOGICAL TRAUMA [None]
